FAERS Safety Report 8351082-6 (Version None)
Quarter: 2012Q2

REPORT INFORMATION
  Report Type: 
  Country: None (occurrence: None)
  Receive Date: 20120510
  Receipt Date: 20120504
  Transmission Date: 20120825
  Serious: Yes (Hospitalization)
  Sender: FDA-Public Use
  Company Number: PHHY2012DE038758

PATIENT
  Age: 30 Year
  Sex: Male

DRUGS (3)
  1. ETORICOXIB [Suspect]
  2. PENICILLIN V [Suspect]
     Route: 065
  3. METAMIZOLE [Suspect]
     Route: 065

REACTIONS (3)
  - STEVENS-JOHNSON SYNDROME [None]
  - TOXIC EPIDERMAL NECROLYSIS [None]
  - PIGMENTATION DISORDER [None]
